FAERS Safety Report 19609289 (Version 3)
Quarter: 2021Q3

REPORT INFORMATION
  Report Type: Report from Study
  Country: None (occurrence: CO)
  Receive Date: 20210726
  Receipt Date: 20210820
  Transmission Date: 20211014
  Serious: Yes (Hospitalization)
  Sender: FDA-Public Use
  Company Number: CO-ABBVIE-21K-036-4008121-00

PATIENT
  Age: 45 Year
  Sex: Female
  Weight: 70 kg

DRUGS (4)
  1. ZEMPLAR [Suspect]
     Active Substance: PARICALCITOL
     Indication: HYPERPARATHYROIDISM SECONDARY
     Route: 042
     Dates: start: 20201226
  2. ZEMPLAR [Suspect]
     Active Substance: PARICALCITOL
     Indication: CHRONIC KIDNEY DISEASE
     Dosage: ON MONDAYS
     Route: 042
  3. ZEMPLAR [Suspect]
     Active Substance: PARICALCITOL
     Route: 042
  4. ZEMPLAR [Suspect]
     Active Substance: PARICALCITOL
     Route: 042

REACTIONS (5)
  - Thyroid disorder [Recovering/Resolving]
  - Haemoglobin abnormal [Recovering/Resolving]
  - COVID-19 [Recovered/Resolved]
  - Blood albumin abnormal [Recovering/Resolving]
  - Hypotension [Recovering/Resolving]

NARRATIVE: CASE EVENT DATE: 2021
